FAERS Safety Report 4305431-6 (Version None)
Quarter: 2004Q1

REPORT INFORMATION
  Report Type: 
  Country: None (occurrence: None)
  Receive Date: 20040226
  Receipt Date: 20031202
  Transmission Date: 20041129
  Serious: No
  Sender: FDA-Public Use
  Company Number: US-BRISTOL-MYERS SQUIBB COMPANY-12448403

PATIENT
  Age: 80 Year
  Sex: Female

DRUGS (4)
  1. TAXOL [Suspect]
     Indication: BREAST CANCER METASTATIC
     Route: 042
     Dates: start: 20010101, end: 20020201
  2. TAXOTERE [Suspect]
     Indication: BREAST CANCER METASTATIC
     Dates: start: 20030101, end: 20030201
  3. HERCEPTIN [Suspect]
     Indication: BREAST CANCER METASTATIC
     Dates: start: 20010101
  4. NAVELBINE [Concomitant]
     Indication: BREAST CANCER METASTATIC
     Dates: start: 20030301

REACTIONS (1)
  - LACRIMATION INCREASED [None]
